FAERS Safety Report 18757865 (Version 1)
Quarter: 2021Q1

REPORT INFORMATION
  Report Type: Spontaneous
  Country: US (occurrence: US)
  Receive Date: 20210119
  Receipt Date: 20210119
  Transmission Date: 20210419
  Serious: Yes (Hospitalization)
  Sender: FDA-Public Use
  Company Number: US-TEVA-2021-US-1869812

PATIENT
  Age: 29 Year
  Sex: Male

DRUGS (2)
  1. CISPLATIN. [Concomitant]
     Active Substance: CISPLATIN
     Indication: CHOLANGIOCARCINOMA
     Route: 065
  2. GEMCITABINE. [Suspect]
     Active Substance: GEMCITABINE
     Indication: CHOLANGIOCARCINOMA
     Route: 065

REACTIONS (1)
  - Atypical haemolytic uraemic syndrome [Recovered/Resolved]
